FAERS Safety Report 15155329 (Version 1)
Quarter: 2018Q3

REPORT INFORMATION
  Report Type: Spontaneous
  Country: KR (occurrence: KR)
  Receive Date: 20180717
  Receipt Date: 20180717
  Transmission Date: 20181010
  Serious: Yes (Other)
  Sender: FDA-Public Use
  Company Number: KR-BAYER-2018-130252

PATIENT
  Age: 63 Year
  Sex: Male

DRUGS (2)
  1. BETAFERON [Suspect]
     Active Substance: INTERFERON BETA-1B
     Dosage: UNK
     Dates: end: 2015
  2. BETAFERON [Suspect]
     Active Substance: INTERFERON BETA-1B
     Dosage: UNK
     Dates: start: 2010

REACTIONS (11)
  - Multiple sclerosis relapse [None]
  - Muscular weakness [None]
  - Pain [None]
  - Hemiplegia [None]
  - White matter lesion [None]
  - Muscle spasticity [None]
  - Intentional product misuse [None]
  - Myelitis transverse [None]
  - Hyperaesthesia [None]
  - Dysarthria [None]
  - Adverse event [None]

NARRATIVE: CASE EVENT DATE: 201606
